FAERS Safety Report 8136567-X (Version None)
Quarter: 2012Q1

REPORT INFORMATION
  Report Type: 
  Country: None (occurrence: None)
  Receive Date: 20120214
  Receipt Date: 20120208
  Transmission Date: 20120608
  Serious: Yes (Other)
  Sender: FDA-Public Use
  Company Number: PHHY2012DE003077

PATIENT
  Sex: Female
  Weight: 77 kg

DRUGS (9)
  1. ZOMETA [Suspect]
     Dosage: 4 MG, EVERY 4 WEEKS
     Route: 042
     Dates: end: 20100621
  2. ZYPREXA [Concomitant]
     Dosage: 5 MG, UNK
     Dates: start: 20031001
  3. SIMVASTATIN [Concomitant]
     Dosage: 20 MG, UNK
     Dates: start: 20030509
  4. ANASTROZOLE [Concomitant]
     Dosage: 1 MG, UNK
     Dates: start: 20091123, end: 20120111
  5. ZOMETA [Suspect]
     Indication: BONE DISORDER
     Dosage: 4 MG, EVERY 4 WEEKS
     Route: 042
     Dates: start: 20091123
  6. ZOMETA [Suspect]
     Dosage: 4 MG, EVERY 4 WEEKS
     Route: 042
     Dates: start: 20091221
  7. ZOMETA [Suspect]
     Dosage: 4 MG, EVERY 4 WEEKS
     Route: 042
     Dates: start: 20100118
  8. ZOMETA [Suspect]
     Dosage: 4 MG, EVERY 4 WEEKS
     Route: 042
     Dates: start: 20100304
  9. RAMIPRIL [Concomitant]
     Dosage: 10/25 MG,
     Dates: start: 20060113

REACTIONS (6)
  - INFLAMMATION [None]
  - ERYTHEMA [None]
  - OSTEOMYELITIS [None]
  - PAIN [None]
  - PURULENCE [None]
  - SWELLING [None]
